FAERS Safety Report 11058903 (Version 1)
Quarter: 2015Q2

REPORT INFORMATION
  Report Type: Spontaneous
  Country: US (occurrence: None)
  Receive Date: 20150422
  Receipt Date: 20150422
  Transmission Date: 20150821
  Serious: Yes (Life-Threatening)
  Sender: FDA-Public Use
  Company Number: None

PATIENT
  Age: 53 Year
  Sex: Male
  Weight: 73.48 kg

DRUGS (3)
  1. REMERON [Concomitant]
     Active Substance: MIRTAZAPINE
  2. PROZAC [Suspect]
     Active Substance: FLUOXETINE HYDROCHLORIDE
     Indication: DEPRESSION
     Dosage: 3 PILLS ONCE DAILY
     Route: 048
     Dates: start: 20140116, end: 20150421
  3. FLOW MAX [Concomitant]

REACTIONS (2)
  - Anger [None]
  - Condition aggravated [None]

NARRATIVE: CASE EVENT DATE: 20150421
